FAERS Safety Report 14092088 (Version 1)
Quarter: 2017Q4

REPORT INFORMATION
  Report Type: Spontaneous
  Country: JP (occurrence: JP)
  Receive Date: 20171016
  Receipt Date: 20171016
  Transmission Date: 20180321
  Serious: Yes (Hospitalization, Other)
  Sender: FDA-Public Use
  Company Number: JP-BRISTOL-MYERS SQUIBB COMPANY-B041187

PATIENT
  Age: 45 Year
  Sex: Female

DRUGS (2)
  1. PARAPLATIN [Suspect]
     Active Substance: CARBOPLATIN
     Indication: OVARIAN CANCER
     Dosage: 300 MG, QCYCLE
     Route: 042
     Dates: start: 19980811, end: 19980811
  2. TAXOL [Suspect]
     Active Substance: PACLITAXEL
     Indication: OVARIAN CANCER
     Dosage: ADD^L CYCLES: 14-JUL-98 AND 11-AUG-98
     Route: 042
     Dates: start: 19980616, end: 19980616

REACTIONS (8)
  - White blood cell count decreased [Recovering/Resolving]
  - Anaemia [Recovering/Resolving]
  - Neutrophil count decreased [Recovering/Resolving]
  - Skin ulcer [Recovering/Resolving]
  - Pyrexia [Recovered/Resolved]
  - Sepsis [Recovered/Resolved]
  - Platelet count decreased [Recovered/Resolved]
  - Granulocyte count decreased [Recovered/Resolved]

NARRATIVE: CASE EVENT DATE: 19980629
